FAERS Safety Report 12652838 (Version 1)
Quarter: 2016Q3

REPORT INFORMATION
  Report Type: Spontaneous
  Country: US (occurrence: US)
  Receive Date: 20160815
  Receipt Date: 20160815
  Transmission Date: 20161109
  Serious: No
  Sender: FDA-Public Use
  Company Number: US-BAYER-2016-157771

PATIENT
  Age: 8 Year
  Sex: Female
  Weight: 43.9 kg

DRUGS (3)
  1. ALBUTEROL. [Concomitant]
     Active Substance: ALBUTEROL
  2. CLARITIN [Suspect]
     Active Substance: LORATADINE
     Indication: LACRIMATION INCREASED
     Dosage: 1 DF, QD
     Route: 048
     Dates: start: 201409
  3. CLARITIN [Suspect]
     Active Substance: LORATADINE
     Indication: EYE PRURITUS

REACTIONS (2)
  - Poor quality drug administered [None]
  - Product use issue [None]

NARRATIVE: CASE EVENT DATE: 201409
